FAERS Safety Report 23129699 (Version 1)
Quarter: 2023Q4

REPORT INFORMATION
  Report Type: Spontaneous
  Country: US (occurrence: None)
  Receive Date: 20231030
  Receipt Date: 20231030
  Transmission Date: 20240110
  Serious: Yes (Death, Life-Threatening, Hospitalization)
  Sender: FDA-Public Use
  Company Number: None

PATIENT
  Age: 59 Year
  Sex: Male

DRUGS (5)
  1. DIETARY SUPPLEMENT [Suspect]
     Active Substance: DIETARY SUPPLEMENT
     Indication: Arthralgia
     Dates: start: 20220930, end: 20230930
  2. DIETARY SUPPLEMENT [Suspect]
     Active Substance: DIETARY SUPPLEMENT
     Indication: Gout
  3. DEXAMETHASONE [Suspect]
     Active Substance: DEXAMETHASONE
  4. DICLOFENAC [Suspect]
     Active Substance: DICLOFENAC
  5. ROBAXIN [Suspect]
     Active Substance: METHOCARBAMOL

REACTIONS (17)
  - Haematemesis [None]
  - Haematochezia [None]
  - Product label issue [None]
  - Haemoglobin decreased [None]
  - Transfusion [None]
  - Haemodynamic instability [None]
  - Gastrointestinal haemorrhage [None]
  - Gastric ulcer [None]
  - Product complaint [None]
  - Product formulation issue [None]
  - Product formulation issue [None]
  - Product use issue [None]
  - Gastrointestinal procedural complication [None]
  - Procedure aborted [None]
  - Intestinal ischaemia [None]
  - Gastric varices [None]
  - Muscular weakness [None]

NARRATIVE: CASE EVENT DATE: 20230930
